FAERS Safety Report 25260412 (Version 1)
Quarter: 2025Q2

REPORT INFORMATION
  Report Type: Other
  Country: IL (occurrence: IL)
  Receive Date: 20250501
  Receipt Date: 20250501
  Transmission Date: 20250716
  Serious: Yes (Other)
  Sender: APRECIA PHARMACEUTICALS
  Company Number: IL-Aprecia Pharmaceuticals-APRE20250172

PATIENT
  Age: 72 Year
  Sex: Female

DRUGS (2)
  1. LEVETIRACETAM [Suspect]
     Active Substance: LEVETIRACETAM
     Indication: Simple partial seizures
     Route: 065
  2. LEVETIRACETAM [Suspect]
     Active Substance: LEVETIRACETAM
     Indication: Epilepsia partialis continua

REACTIONS (3)
  - Epilepsia partialis continua [Recovered/Resolved]
  - Condition aggravated [Recovering/Resolving]
  - Cognitive disorder [Unknown]
